FAERS Safety Report 25810833 (Version 1)
Quarter: 2025Q3

REPORT INFORMATION
  Report Type: Report from Study
  Country: US (occurrence: US)
  Receive Date: 20250917
  Receipt Date: 20250917
  Transmission Date: 20251020
  Serious: Yes (Other)
  Sender: EMD SERONO INC
  Company Number: US-Merck Healthcare KGaA-2025046133

PATIENT
  Sex: Female

DRUGS (1)
  1. REBIF [Suspect]
     Active Substance: INTERFERON BETA-1A
     Indication: Multiple sclerosis
     Dates: start: 20210521

REACTIONS (9)
  - Narcolepsy [Unknown]
  - Bladder disorder [Unknown]
  - Blood urine present [Unknown]
  - Dysuria [Unknown]
  - Craniofacial fracture [Unknown]
  - Accident at home [Unknown]
  - Limb discomfort [Unknown]
  - Gait disturbance [Unknown]
  - Drug ineffective [Unknown]
